FAERS Safety Report 9586575 (Version 2)
Quarter: 2013Q4

REPORT INFORMATION
  Report Type: Spontaneous
  Country: GB (occurrence: GB)
  Receive Date: 20131003
  Receipt Date: 20131014
  Transmission Date: 20140711
  Serious: Yes (Hospitalization)
  Sender: FDA-Public Use
  Company Number: GB-PFIZER INC-2013277453

PATIENT
  Age: 51 Year
  Sex: Female
  Weight: 54.7 kg

DRUGS (6)
  1. CARBOPLATIN [Suspect]
     Indication: BREAST CANCER
     Dosage: 590 MG (6AUC), EVERY 3 WEEKS
     Route: 042
     Dates: start: 20100907
  2. DOCETAXEL [Suspect]
     Indication: BREAST CANCER
     Dosage: 120 MG (75 MG/M2), EVERY 3 WEEKS
     Route: 042
     Dates: start: 20100907
  3. BEVACIZUMAB [Suspect]
     Dosage: 825 MG (15 MG/KG), EVERY 3 WEEKS
     Route: 042
     Dates: start: 20100907
  4. TRASTUZUMAB [Suspect]
     Indication: BREAST CANCER
     Dosage: 8 MG/KG, CYCLIC
     Route: 042
     Dates: start: 20100907
  5. METOCLOPRAMIDE [Concomitant]
     Dosage: 40 MG, UNK
     Dates: start: 20100907
  6. DICLOFENAC [Concomitant]
     Dosage: UNK
     Dates: start: 20100915

REACTIONS (2)
  - Neutropenic infection [Recovered/Resolved]
  - Dyspnoea [Recovered/Resolved]
